FAERS Safety Report 16615245 (Version 2)
Quarter: 2019Q3

REPORT INFORMATION
  Report Type: Report from Study
  Country: CA (occurrence: CA)
  Receive Date: 20190723
  Receipt Date: 20190930
  Transmission Date: 20191004
  Serious: Yes (Hospitalization, Other)
  Sender: FDA-Public Use
  Company Number: CA-GLAXOSMITHKLINE-CA2019AMR131546

PATIENT
  Age: 69 Year
  Sex: Male

DRUGS (2)
  1. MEPOLIZUMAB [Suspect]
     Active Substance: MEPOLIZUMAB
     Dosage: 100 MG, Z(MONTHLY)
     Route: 042
  2. MEPOLIZUMAB [Suspect]
     Active Substance: MEPOLIZUMAB
     Indication: ASTHMA
     Dosage: 100 MG, Z (MONTHLY)
     Route: 042
     Dates: start: 20170306

REACTIONS (6)
  - Urosepsis [Unknown]
  - Blood urine present [Unknown]
  - Cystitis [Unknown]
  - Urinary tract infection [Unknown]
  - Prostatectomy [Unknown]
  - Dysuria [Unknown]

NARRATIVE: CASE EVENT DATE: 20190621
